FAERS Safety Report 5725303-X (Version None)
Quarter: 2008Q2

REPORT INFORMATION
  Report Type: 
  Country: None (occurrence: None)
  Receive Date: 20080429
  Receipt Date: 20080417
  Transmission Date: 20081010
  Serious: Yes (Hospitalization)
  Sender: FDA-Public Use
  Company Number: 02100-JPN-07-0649

PATIENT
  Age: 57 Year
  Sex: Female

DRUGS (55)
  1. PLETAL [Suspect]
     Indication: CEREBROVASCULAR ACCIDENT
     Dosage: 100 MG, BID ORAL; 100 MG, BID,; ORAL; 100 MG, BID; ORAL; 100 MG, BID, ORAL;
     Route: 048
     Dates: start: 20070912, end: 20071016
  2. PLETAL [Suspect]
     Indication: CEREBROVASCULAR ACCIDENT
     Dosage: 100 MG, BID ORAL; 100 MG, BID,; ORAL; 100 MG, BID; ORAL; 100 MG, BID, ORAL;
     Route: 048
     Dates: start: 20071019, end: 20080111
  3. PLETAL [Suspect]
     Indication: CEREBROVASCULAR ACCIDENT
     Dosage: 100 MG, BID ORAL; 100 MG, BID,; ORAL; 100 MG, BID; ORAL; 100 MG, BID, ORAL;
     Route: 048
     Dates: start: 20080115, end: 20080217
  4. PLETAL [Suspect]
     Indication: CEREBROVASCULAR ACCIDENT
     Dosage: 100 MG, BID ORAL; 100 MG, BID,; ORAL; 100 MG, BID; ORAL; 100 MG, BID, ORAL;
     Route: 048
     Dates: start: 20080221
  5. PLAVIX [Suspect]
     Indication: CEREBROVASCULAR ACCIDENT
     Dosage: 75 MG, QD ORAL; 75 MG, QD, ORAL; 75 MG, QD, ORAL; 75 MG, QD, ORAL
     Route: 048
     Dates: start: 20070912, end: 20071016
  6. PLAVIX [Suspect]
     Indication: CEREBROVASCULAR ACCIDENT
     Dosage: 75 MG, QD ORAL; 75 MG, QD, ORAL; 75 MG, QD, ORAL; 75 MG, QD, ORAL
     Route: 048
     Dates: start: 20071019, end: 20080111
  7. PLAVIX [Suspect]
     Indication: CEREBROVASCULAR ACCIDENT
     Dosage: 75 MG, QD ORAL; 75 MG, QD, ORAL; 75 MG, QD, ORAL; 75 MG, QD, ORAL
     Route: 048
     Dates: start: 20080115, end: 20080217
  8. PLAVIX [Suspect]
     Indication: CEREBROVASCULAR ACCIDENT
     Dosage: 75 MG, QD ORAL; 75 MG, QD, ORAL; 75 MG, QD, ORAL; 75 MG, QD, ORAL
     Route: 048
     Dates: start: 20080221
  9. METFORMIN HYDROCHLORIDE (ATORVASTATIN CALCIUM) TABLET [Concomitant]
  10. GLIMEPIRIDE [Concomitant]
  11. ATORVASTATIN CALCIUM (ATORVASTATIN CALCIUM) TABLET [Concomitant]
  12. CITALOPRAM HYDROBROMIDE [Concomitant]
  13. RAUBASINE-ALMITRINE BISMESILATE (RAUBASINE-ALMITRINE BISMESILATE) [Concomitant]
  14. RANITIDINE (RANIDIDINE) [Concomitant]
  15. LACTOBACILLUS ACIDOPHILLUS (LACTOBACILLUS ACIDOPHILLUS) [Concomitant]
  16. ASPIRIN [Concomitant]
  17. TELMISARTAN-HYDROCHLOROTHIAZIDE (TELMISARTAN-HYDROCHLOROTHIAZIDE) [Concomitant]
  18. CLOPIDOGREL [Concomitant]
  19. BISACODYL (BISACODYL) [Concomitant]
  20. TAMSULOSIN HYDROCHLORIDE (TAMSULOSIN HYDROCHLORIDE) [Concomitant]
  21. METHYLPREDNISOLONE ACEPONATE (METHYLPREDNISOLONE ACEPONATE) [Concomitant]
  22. METFORMIN HCL [Concomitant]
  23. TRAMADOL HCL [Concomitant]
  24. PAN-B-COMP (MADE BY DAI-HAN) (PAN-B-COMP (MADE BY DAI-HAN)) [Concomitant]
  25. MAGNESIUM OXIDE (MAGNESIUM OXIDE) [Concomitant]
  26. ALAXYL GRANULE (MADE BY BUKWANG) (ALAXYL GRANULE (MADE BY BUKWANT)) [Concomitant]
  27. ESCITALOPRAM OXALATE (ESCITALOPRAM OXALATE) [Concomitant]
  28. DEXTROSE/SODIUM CHLORIDE (DEXTROSE/SODIUM CHLORIDE) [Concomitant]
  29. SODIUM CHLORIDE 0.9% [Concomitant]
  30. POTASSIUM CHLORIDE [Concomitant]
  31. METOCLOPRAMIDE HYDROCHLORIDE [Concomitant]
  32. GLUCOSE 10% (GLUCOSE) [Concomitant]
  33. HUMAN REGULAR INSULIN I (HUMAN REGULAR INSULIN) [Concomitant]
  34. ALMAGATE (ALMAGATE) [Concomitant]
  35. AMINO ACID 10% (AMINO ACID) [Concomitant]
  36. COMBIFLEX PERI INFU, BAG (MADE BY CHOONG-WAE) (COMBIFLEX PERI INFU. BA [Concomitant]
  37. INSULIN LISPRO (INSULIN LISPRO) [Concomitant]
  38. STREPTASE [Concomitant]
  39. AMOXICILLIN/CLAVULANATE (AMOXICILLIN/CLAVULANATE) [Concomitant]
  40. DOXOFYLLINE (DOXOFYLLINE) [Concomitant]
  41. GLUCOSE/SALINE 5% (GLUCOSE/SALINE 5%) [Concomitant]
  42. LANSOPRAZOLE [Concomitant]
  43. ERYTHROMYCIN [Concomitant]
  44. NPH INSULIN (INSULIN INJECTION, ISOPHANE) [Concomitant]
  45. HUMAN INSULIN (HUMAN INSULIN) [Concomitant]
  46. ACETYLCYSTEINE [Concomitant]
  47. HUMAN NPH INSULIN (HUMAN NPH INSULIN) [Concomitant]
  48. HUMAN REGULAR INSULIN (HUMAN REGULAR INSULIN) [Concomitant]
  49. ACEBROPHYLLINE (ACEBROPHYLLINE) [Concomitant]
  50. NITROGLYCERIN [Concomitant]
  51. BISOPROLOL HEMIFUMARATE (BISOPROLOL HEMIFUMARATE) [Concomitant]
  52. DOMPERIDONE MALEATE (DOMPERIDONE MALEATE) [Concomitant]
  53. CAFSOL (MADE BY CHONG-KUN-DANG) [Concomitant]
  54. INTRALIPID (MADE BY GREENCROSS) [Concomitant]
  55. ALPRAZOLAM [Concomitant]

REACTIONS (9)
  - CELLULITIS [None]
  - CONJUNCTIVAL DISORDER [None]
  - DIABETIC GASTROPATHY [None]
  - NAUSEA [None]
  - ORAL INTAKE REDUCED [None]
  - PALLOR [None]
  - SKIN GRAFT [None]
  - TOOTHACHE [None]
  - VOMITING [None]
